FAERS Safety Report 6795397-1 (Version None)
Quarter: 2010Q2

REPORT INFORMATION
  Report Type: 
  Country: None (occurrence: None)
  Receive Date: 20100625
  Receipt Date: 20100615
  Transmission Date: 20101027
  Serious: Yes (Hospitalization)
  Sender: FDA-Public Use
  Company Number: US-JNJFOC-20090708555

PATIENT
  Sex: Female
  Weight: 62.6 kg

DRUGS (8)
  1. TYLENOL [Suspect]
     Route: 048
  2. TYLENOL [Suspect]
     Indication: ANALGESIC THERAPY
     Route: 048
  3. MOTRIN [Suspect]
     Indication: HEADACHE
     Route: 048
  4. MOTRIN [Suspect]
     Indication: ANALGESIC THERAPY
     Route: 048
  5. ZOLOFT [Suspect]
     Indication: DEPRESSION
  6. DIOVAN [Concomitant]
     Indication: HYPERTENSION
  7. BUTALBITAL [Concomitant]
     Indication: HEADACHE
  8. ATENOLOL [Concomitant]
     Indication: DRUG USE FOR UNKNOWN INDICATION

REACTIONS (2)
  - CHOLESTASIS [None]
  - TOXIC EPIDERMAL NECROLYSIS [None]
